FAERS Safety Report 21917856 (Version 1)
Quarter: 2023Q1

REPORT INFORMATION
  Report Type: Spontaneous
  Country: CN (occurrence: CN)
  Receive Date: 20230127
  Receipt Date: 20230127
  Transmission Date: 20230417
  Serious: Yes (Other)
  Sender: FDA-Public Use
  Company Number: CN-TOLMAR, INC.-23CN038593

PATIENT
  Age: 36 Year
  Sex: Female

DRUGS (5)
  1. LEUPROLIDE ACETATE [Suspect]
     Active Substance: LEUPROLIDE ACETATE
     Indication: Breast cancer stage IV
     Dosage: 3.75 MILLIGRAM, Q 1 MONTH
     Dates: start: 20220215
  2. ELIGARD [Suspect]
     Active Substance: LEUPROLIDE ACETATE
     Indication: Breast cancer stage IV
     Dosage: UNK
  3. TAMOXIFEN [Suspect]
     Active Substance: TAMOXIFEN
     Indication: Breast cancer stage IV
     Dosage: 20 MILLIGRAM, QD
     Route: 048
     Dates: start: 20220215
  4. LETROZOLE [Suspect]
     Active Substance: LETROZOLE
     Indication: Breast cancer stage IV
     Dosage: 2.5 MILLIGRAM, QD
     Route: 048
     Dates: start: 20220215
  5. DALPICICLIB [Suspect]
     Active Substance: DALPICICLIB
     Indication: Breast cancer stage IV
     Dosage: 125 MG, QD, PO, 3 WEEKS ON/1 WEEK OFF
     Route: 048
     Dates: start: 20220215

REACTIONS (3)
  - Neutropenia [Recovered/Resolved]
  - Therapeutic response unexpected [Unknown]
  - Off label use [Unknown]
